FAERS Safety Report 9246140 (Version 1)
Quarter: 2013Q2

REPORT INFORMATION
  Report Type: Spontaneous
  Country: JP (occurrence: JP)
  Receive Date: 20130422
  Receipt Date: 20130422
  Transmission Date: 20140414
  Serious: Yes (Other)
  Sender: FDA-Public Use
  Company Number: JP-ELI_LILLY_AND_COMPANY-JP201304003909

PATIENT
  Sex: Female

DRUGS (3)
  1. ALIMTA [Suspect]
     Indication: NON-SMALL CELL LUNG CANCER
     Route: 042
  2. FOLIC ACID [Concomitant]
     Route: 048
  3. VITAMIN B12 [Concomitant]
     Route: 030

REACTIONS (1)
  - Liver disorder [Not Recovered/Not Resolved]
